FAERS Safety Report 4731925-5 (Version None)
Quarter: 2005Q3

REPORT INFORMATION
  Report Type: 
  Country: None (occurrence: None)
  Receive Date: 20050725
  Receipt Date: 20041022
  Transmission Date: 20060218
  Serious: Yes (Life-Threatening)
  Sender: FDA-Public Use
  Company Number: WAES 0410USA03572

PATIENT
  Age: 80 Year
  Sex: Female

DRUGS (2)
  1. VIOXX [Suspect]
     Indication: ARTHRITIS
     Dosage: UNK/UNK/PO
     Route: 048
  2. ADVIL [Concomitant]

REACTIONS (2)
  - ABDOMINAL PAIN UPPER [None]
  - VOMITING [None]
